FAERS Safety Report 20136790 (Version 1)
Quarter: 2021Q4

REPORT INFORMATION
  Report Type: Spontaneous
  Country: AU (occurrence: AU)
  Receive Date: 20211201
  Receipt Date: 20211201
  Transmission Date: 20220303
  Serious: Yes (Other)
  Sender: FDA-Public Use
  Company Number: AU-NOVARTISPH-NVSC2021AU271276

PATIENT
  Age: 67 Year
  Sex: Female

DRUGS (1)
  1. DEXAMETHASONE [Suspect]
     Active Substance: DEXAMETHASONE
     Indication: Episcleritis
     Dosage: 0.1 %, UNKNOWN
     Route: 061

REACTIONS (5)
  - Scleritis [Unknown]
  - Scleral disorder [Unknown]
  - Pain [Unknown]
  - Visual impairment [Unknown]
  - Product use in unapproved indication [Unknown]
